FAERS Safety Report 9047080 (Version 1)
Quarter: 2013Q1

REPORT INFORMATION
  Report Type: Spontaneous
  Country: US (occurrence: None)
  Receive Date: 20130129
  Receipt Date: 20130129
  Transmission Date: 20140127
  Serious: Yes (Life-Threatening)
  Sender: FDA-Public Use
  Company Number: None

PATIENT
  Age: 30 Year
  Sex: Male

DRUGS (2)
  1. PEGASYS 180MCG GENENTECH [Suspect]
     Indication: HEPATITIS C
     Dosage: PEGASYS 180MCG  QW   SQ?FROM 121312  TO  PRESENT
     Route: 058
     Dates: start: 20121213
  2. RIBAVIRIN [Suspect]
     Indication: HEPATITIS C
     Dosage: RIBAVIN 800 MG   DAILY   PO?FROM  121312  TO  PRESENT
     Route: 048
     Dates: start: 20121213

REACTIONS (1)
  - Depression suicidal [None]
